FAERS Safety Report 8572805-7 (Version None)
Quarter: 2012Q3

REPORT INFORMATION
  Report Type: 
  Country: None (occurrence: None)
  Receive Date: 20120806
  Receipt Date: 20120112
  Transmission Date: 20120928
  Serious: Yes (Other)
  Sender: FDA-Public Use
  Company Number: US-ROCHE-GNE291613

PATIENT
  Sex: Male

DRUGS (2)
  1. XOLAIR [Suspect]
     Indication: PRODUCT USED FOR UNKNOWN INDICATION
     Dosage: UNK
  2. XOLAIR [Suspect]
     Dosage: 2 UNK, UNK
     Dates: start: 20090101

REACTIONS (2)
  - HYPERSENSITIVITY [None]
  - SINUSITIS [None]
